FAERS Safety Report 7686856-8 (Version None)
Quarter: 2011Q3

REPORT INFORMATION
  Report Type: 
  Country: None (occurrence: None)
  Receive Date: 20110816
  Receipt Date: 20110801
  Transmission Date: 20111222
  Serious: Yes (Death)
  Sender: FDA-Public Use
  Company Number: IR-WATSON-2011-12531

PATIENT
  Age: 2 Year
  Sex: Male

DRUGS (2)
  1. PREDNISOLONE [Suspect]
     Indication: TRANSPLANT
     Dosage: 5 MG DAILY
  2. TACROLIMUS [Suspect]
     Indication: IMMUNOSUPPRESSANT DRUG THERAPY
     Dosage: 0.15 MG/KG, DAILY
     Route: 048

REACTIONS (11)
  - LEFT VENTRICULAR HYPERTROPHY [None]
  - AORTIC VALVE STENOSIS [None]
  - HYPERTROPHIC CARDIOMYOPATHY [None]
  - PYREXIA [None]
  - ELECTROCARDIOGRAM ABNORMAL [None]
  - HYPERTENSION [None]
  - DYSPNOEA [None]
  - CARDIAC MURMUR [None]
  - TACHYCARDIA [None]
  - LYMPHADENOPATHY [None]
  - DRUG LEVEL INCREASED [None]
